FAERS Safety Report 11649730 (Version 3)
Quarter: 2015Q4

REPORT INFORMATION
  Report Type: Spontaneous
  Country: JP (occurrence: JP)
  Receive Date: 20151021
  Receipt Date: 20151204
  Transmission Date: 20160304
  Serious: Yes (Hospitalization)
  Sender: FDA-Public Use
  Company Number: JP-TEVA-602684USA

PATIENT
  Age: 82 Year
  Sex: Male

DRUGS (12)
  1. BENDAMUSTINE HYDROCHLORIDE [Suspect]
     Active Substance: BENDAMUSTINE HYDROCHLORIDE
     Dosage: 120 MG/M2, CYCLIC (2ND CYCLE)
     Route: 042
     Dates: start: 20140812, end: 20140813
  2. BENDAMUSTINE HYDROCHLORIDE [Suspect]
     Active Substance: BENDAMUSTINE HYDROCHLORIDE
     Dosage: 120 MG/M2, CYCLIC (4TH CYCLE)
     Route: 042
     Dates: start: 20141007, end: 20141008
  3. RITUXIMAB [Concomitant]
     Active Substance: RITUXIMAB
     Route: 042
     Dates: start: 20141006
  4. RITUXIMAB [Concomitant]
     Active Substance: RITUXIMAB
     Route: 042
     Dates: start: 20141127
  5. RITUXIMAB [Concomitant]
     Active Substance: RITUXIMAB
     Route: 042
     Dates: start: 20150122
  6. RITUXIMAB [Concomitant]
     Active Substance: RITUXIMAB
     Indication: PRODUCT USED FOR UNKNOWN INDICATION
     Route: 042
     Dates: start: 20140714
  7. RITUXIMAB [Concomitant]
     Active Substance: RITUXIMAB
     Route: 042
     Dates: start: 20140908
  8. BENDAMUSTINE HYDROCHLORIDE [Suspect]
     Active Substance: BENDAMUSTINE HYDROCHLORIDE
     Dosage: 120 MG/M2, CYCLIC (5TH CYCLE)
     Route: 042
     Dates: start: 20141128, end: 20141129
  9. BENDAMUSTINE HYDROCHLORIDE [Suspect]
     Active Substance: BENDAMUSTINE HYDROCHLORIDE
     Dosage: 120 MG/M2, CYCLIC (6TH CYCLE)
     Route: 042
     Dates: start: 20150123, end: 20150124
  10. BENDAMUSTINE HYDROCHLORIDE [Suspect]
     Active Substance: BENDAMUSTINE HYDROCHLORIDE
     Indication: B-CELL LYMPHOMA
     Dosage: 120 MG/M2, CYCLIC (1ST CYCLE)
     Route: 042
     Dates: start: 20140715, end: 20140716
  11. RITUXIMAB [Concomitant]
     Active Substance: RITUXIMAB
     Route: 042
     Dates: start: 20140811
  12. BENDAMUSTINE HYDROCHLORIDE [Suspect]
     Active Substance: BENDAMUSTINE HYDROCHLORIDE
     Dosage: 120 MG/M2, CYCLIC (3RD CYCLE)
     Route: 042
     Dates: start: 20140909, end: 20140910

REACTIONS (5)
  - Altered state of consciousness [Unknown]
  - Pyrexia [Unknown]
  - Pneumonia [Recovering/Resolving]
  - Immune system disorder [Unknown]
  - CD4 lymphocytes decreased [Unknown]

NARRATIVE: CASE EVENT DATE: 20150828
